FAERS Safety Report 5519122-7 (Version None)
Quarter: 2007Q4

REPORT INFORMATION
  Report Type: 
  Country: None (occurrence: None)
  Receive Date: 20071114
  Receipt Date: 20071114
  Transmission Date: 20080405
  Serious: Yes (Other)
  Sender: FDA-Public Use
  Company Number: None

PATIENT
  Sex: Male
  Weight: 86.1834 kg

DRUGS (7)
  1. ALLEGRA [Suspect]
     Indication: ASTHMA
     Dosage: 180MG  QD-BID  PO
     Route: 048
     Dates: start: 20010901, end: 20070501
  2. FEXOFENADINE [Suspect]
     Indication: MULTIPLE ALLERGIES
  3. PULMICORT [Concomitant]
  4. VALTREX [Concomitant]
  5. ALBUTEROL [Concomitant]
  6. SINGULAIR [Concomitant]
  7. NAPROXEN [Concomitant]

REACTIONS (4)
  - GLOSSODYNIA [None]
  - MUCOSAL INFLAMMATION [None]
  - TONGUE DISCOLOURATION [None]
  - TONGUE DISORDER [None]
